FAERS Safety Report 22325086 (Version 2)
Quarter: 2023Q2

REPORT INFORMATION
  Report Type: Spontaneous
  Country: US (occurrence: US)
  Receive Date: 20230516
  Receipt Date: 20230626
  Transmission Date: 20230722
  Serious: Yes (Other)
  Sender: FDA-Public Use
  Company Number: US-PFIZER INC-PV202300082838

PATIENT
  Age: 83 Year
  Sex: Female

DRUGS (2)
  1. IBRANCE [Suspect]
     Active Substance: PALBOCICLIB
     Indication: Breast cancer female
     Dosage: 100 MG
  2. IBRANCE [Suspect]
     Active Substance: PALBOCICLIB
     Dosage: 75 MG, CYCLIC (WITH OR WITHOUT FOOD ON DAYS 1-21 OF 28 DAY CYCLE)
     Route: 048
     Dates: start: 20230615

REACTIONS (3)
  - Neutropenia [Unknown]
  - Dysphonia [Unknown]
  - White blood cell count decreased [Unknown]
